FAERS Safety Report 14708275 (Version 2)
Quarter: 2018Q2

REPORT INFORMATION
  Report Type: Spontaneous
  Country: US (occurrence: US)
  Receive Date: 20180403
  Receipt Date: 20180514
  Transmission Date: 20180711
  Serious: No
  Sender: FDA-Public Use
  Company Number: US-SHIRE-US201812714

PATIENT
  Age: 64 Year
  Sex: Female

DRUGS (1)
  1. NATPARA (PARATHYROID HORMONE) [Suspect]
     Active Substance: PARATHYROID HORMONE
     Indication: HYPOPARATHYROIDISM
     Dosage: 50 ?G, 1X/DAY:QD
     Route: 042
     Dates: start: 20170905

REACTIONS (2)
  - Bone disorder [Unknown]
  - Jaw disorder [Unknown]

NARRATIVE: CASE EVENT DATE: 20180402
